FAERS Safety Report 14597859 (Version 1)
Quarter: 2018Q1

REPORT INFORMATION
  Report Type: Spontaneous
  Country: US (occurrence: US)
  Receive Date: 20180305
  Receipt Date: 20180305
  Transmission Date: 20180509
  Serious: No
  Sender: FDA-Public Use
  Company Number: US-PFIZER INC-2018089455

PATIENT
  Age: 69 Year
  Sex: Female
  Weight: 68.4 kg

DRUGS (13)
  1. GLIPIZIDE. [Concomitant]
     Active Substance: GLIPIZIDE
  2. CLONIDINE. [Concomitant]
     Active Substance: CLONIDINE
  3. FUROSEMIDE. [Concomitant]
     Active Substance: FUROSEMIDE
  4. BUSPIRONE [Concomitant]
     Active Substance: BUSPIRONE HYDROCHLORIDE
  5. LYRICA [Suspect]
     Active Substance: PREGABALIN
     Indication: CELLULITIS
     Dosage: 75 MG, 2X/DAY
     Route: 048
     Dates: start: 20180226
  6. HYDRALAZINE [Concomitant]
     Active Substance: HYDRALAZINE HYDROCHLORIDE
  7. ISOSORBIDE. [Concomitant]
     Active Substance: ISOSORBIDE
  8. ROPINIROLE. [Concomitant]
     Active Substance: ROPINIROLE
  9. PRAMIPEXOLE. [Concomitant]
     Active Substance: PRAMIPEXOLE
  10. AMLODIPINE [Concomitant]
     Active Substance: AMLODIPINE BESYLATE
  11. METOPROLOL. [Concomitant]
     Active Substance: METOPROLOL
  12. PRAVASTATIN. [Concomitant]
     Active Substance: PRAVASTATIN
  13. LYRICA [Suspect]
     Active Substance: PREGABALIN
     Indication: NEUROPATHY PERIPHERAL

REACTIONS (8)
  - Dizziness [Unknown]
  - Drug dose omission [Unknown]
  - Confusional state [Unknown]
  - Visual impairment [Unknown]
  - Disturbance in attention [Recovering/Resolving]
  - Feeling abnormal [Unknown]
  - Gait disturbance [Unknown]
  - Expired product administered [Unknown]

NARRATIVE: CASE EVENT DATE: 20180227
